FAERS Safety Report 7552918-9 (Version None)
Quarter: 2011Q2

REPORT INFORMATION
  Report Type: 
  Country: None (occurrence: None)
  Receive Date: 20110616
  Receipt Date: 20100803
  Transmission Date: 20111010
  Serious: No
  Sender: FDA-Public Use
  Company Number: US-ASTRAZENECA-2010SE36269

PATIENT
  Age: 61 Year
  Sex: Female
  Weight: 66.2 kg

DRUGS (2)
  1. FASLODEX [Suspect]
     Indication: BREAST CANCER METASTATIC
     Route: 030
     Dates: start: 20100601
  2. ZOMETA [Concomitant]

REACTIONS (3)
  - THROAT IRRITATION [None]
  - PRURITUS GENERALISED [None]
  - OROPHARYNGEAL PAIN [None]
